FAERS Safety Report 21902414 (Version 1)
Quarter: 2023Q1

REPORT INFORMATION
  Report Type: Spontaneous
  Country: GR (occurrence: GR)
  Receive Date: 20230124
  Receipt Date: 20230124
  Transmission Date: 20230418
  Serious: Yes (Other)
  Sender: FDA-Public Use
  Company Number: GR-SUN PHARMACEUTICAL INDUSTRIES LTD-2023R1-374253

PATIENT
  Age: 47 Year
  Sex: Female

DRUGS (2)
  1. OLANZAPINE [Suspect]
     Active Substance: OLANZAPINE
     Indication: Mania
     Dosage: 20 MILLIGRAM, QD
     Route: 048
  2. LITHIUM [Suspect]
     Active Substance: LITHIUM
     Indication: Mania
     Dosage: UNK
     Route: 065

REACTIONS (1)
  - Drug resistance [Unknown]
